FAERS Safety Report 4295078-2 (Version None)
Quarter: 2004Q1

REPORT INFORMATION
  Report Type: 
  Country: None (occurrence: None)
  Receive Date: 20040216
  Receipt Date: 20040210
  Transmission Date: 20041129
  Serious: Yes (Other)
  Sender: FDA-Public Use
  Company Number: US-GLAXOSMITHKLINE-A0497735A

PATIENT
  Age: 79 Year
  Sex: Male

DRUGS (4)
  1. LANOXIN [Suspect]
     Indication: ATRIAL FIBRILLATION
     Dosage: .125MG PER DAY
     Route: 048
  2. RANITIDINE [Concomitant]
  3. PROTONIX [Concomitant]
  4. IRON [Concomitant]

REACTIONS (1)
  - SYNCOPE [None]
